FAERS Safety Report 4602660-9 (Version None)
Quarter: 2005Q1

REPORT INFORMATION
  Report Type: 
  Country: None (occurrence: None)
  Receive Date: 20050307
  Receipt Date: 20050223
  Transmission Date: 20050727
  Serious: Yes (Hospitalization)
  Sender: FDA-Public Use
  Company Number: EM2005-0080

PATIENT
  Age: 37 Year
  Sex: Male
  Weight: 50.5 kg

DRUGS (6)
  1. MACROLIN [Suspect]
     Indication: HIV INFECTION
     Dosage: SEE IMAGE
     Dates: start: 20040913, end: 20040917
  2. MACROLIN [Suspect]
     Indication: HIV INFECTION
     Dosage: SEE IMAGE
     Dates: start: 20040329
  3. MACROLIN [Suspect]
     Indication: HIV INFECTION
     Dosage: SEE IMAGE
     Dates: start: 20040524
  4. MACROLIN [Suspect]
  5. BACTRIM [Concomitant]
  6. BACTRIM [Concomitant]

REACTIONS (1)
  - LYMPHOMA [None]
